FAERS Safety Report 9988802 (Version 4)
Quarter: 2015Q4

REPORT INFORMATION
  Report Type: Spontaneous
  Country: US (occurrence: None)
  Receive Date: 20131011
  Receipt Date: 20151103
  Transmission Date: 20160305
  Serious: Yes (Death, Life-Threatening, Hospitalization, Disabling)
  Sender: FDA-Public Use
  Company Number: 1713747-2013-99957

PATIENT
  Age: 26 Year
  Sex: Female
  Weight: 78 kg

DRUGS (14)
  1. COLLECTIVE CONCENTRATES (GRANUFLO AND NATURALYTE) [Concomitant]
  2. FRESENIUS 2008K [Concomitant]
  3. RENAGEL [Concomitant]
     Active Substance: SEVELAMER HYDROCHLORIDE
  4. OPTIFLUX 180NRE [Concomitant]
  5. ENGERIX B VL [Concomitant]
  6. ZONE PERFECT PROTEIN BAR [Concomitant]
  7. SENSIPAR [Concomitant]
     Active Substance: CINACALCET HYDROCHLORIDE
  8. ZEMPLAR MULTIDOSE VL [Concomitant]
  9. 0.9% SODIUM CHLORIDE [Suspect]
     Active Substance: SODIUM CHLORIDE
     Indication: FLUID REPLACEMENT
     Dates: start: 20120607
  10. EPOGEN [Concomitant]
     Active Substance: ERYTHROPOIETIN
  11. FRESENIUS COMBISET 2008 [Concomitant]
  12. VENOFER [Concomitant]
     Active Substance: IRON SUCROSE
  13. HEPARIN-PORK [Concomitant]
  14. CALCITRIOL. [Concomitant]
     Active Substance: CALCITRIOL

REACTIONS (4)
  - Sudden cardiac death [None]
  - Cardio-respiratory arrest [None]
  - Cardiac operation [None]
  - Unresponsive to stimuli [None]

NARRATIVE: CASE EVENT DATE: 20120607
